FAERS Safety Report 9786585 (Version 2)
Quarter: 2013Q4

REPORT INFORMATION
  Report Type: Spontaneous
  Country: US (occurrence: US)
  Receive Date: 20131227
  Receipt Date: 20131227
  Transmission Date: 20140711
  Serious: No
  Sender: FDA-Public Use
  Company Number: US-ENDO PHARMACEUTICALS INC.-OPCR20120460

PATIENT
  Age: 56 Year
  Sex: Male

DRUGS (2)
  1. OPANA ER 30MG [Suspect]
     Indication: PAIN
     Dosage: 30MG
     Route: 048
     Dates: start: 20120423
  2. OPANA ER 30MG [Concomitant]
     Indication: PAIN
     Dosage: 30 MG
     Route: 048
     Dates: end: 201204

REACTIONS (1)
  - Drug effect decreased [Recovered/Resolved]
